FAERS Safety Report 23686378 (Version 1)
Quarter: 2024Q1

REPORT INFORMATION
  Report Type: Spontaneous
  Country: AU (occurrence: AU)
  Receive Date: 20240329
  Receipt Date: 20240329
  Transmission Date: 20240409
  Serious: Yes (Hospitalization, Other)
  Sender: FDA-Public Use
  Company Number: AU-009507513-2403AUS009289

PATIENT
  Age: 80 Year
  Sex: Male

DRUGS (1)
  1. BCG LIVE [Suspect]
     Active Substance: BACILLUS CALMETTE-GUERIN SUBSTRAIN TICE LIVE ANTIGEN
     Indication: Bladder cancer
     Dosage: UNK
     Route: 043

REACTIONS (8)
  - Mycobacterium tuberculosis complex test positive [Not Recovered/Not Resolved]
  - Multiple organ dysfunction syndrome [Unknown]
  - Pancytopenia [Unknown]
  - Inflammatory marker increased [Unknown]
  - Serum ferritin increased [Unknown]
  - Tenderness [Unknown]
  - Hypotension [Unknown]
  - Lethargy [Unknown]
